FAERS Safety Report 9363363 (Version 5)
Quarter: 2015Q1

REPORT INFORMATION
  Report Type: Report from Study
  Country: BR (occurrence: BR)
  Receive Date: 20130624
  Receipt Date: 20150310
  Transmission Date: 20150721
  Serious: Yes (Hospitalization)
  Sender: FDA-Public Use
  Company Number: BR-ROCHE-1000700

PATIENT
  Sex: Female
  Weight: 83 kg

DRUGS (18)
  1. ACTEMRA [Suspect]
     Active Substance: TOCILIZUMAB
     Route: 042
     Dates: start: 20131031
  2. METHOTREXATE [Concomitant]
     Active Substance: METHOTREXATE
  3. MABTHERA [Suspect]
     Active Substance: RITUXIMAB
     Route: 042
     Dates: start: 20111020
  4. ORENCIA [Concomitant]
     Active Substance: ABATACEPT
  5. MABTHERA [Suspect]
     Active Substance: RITUXIMAB
     Route: 042
     Dates: start: 20140820
  6. ACTEMRA [Suspect]
     Active Substance: TOCILIZUMAB
     Route: 042
     Dates: start: 20140212
  7. IMURAN [Concomitant]
     Active Substance: AZATHIOPRINE
  8. MABTHERA [Suspect]
     Active Substance: RITUXIMAB
     Indication: RHEUMATOID ARTHRITIS
     Route: 042
     Dates: start: 20090701, end: 200907
  9. MABTHERA [Suspect]
     Active Substance: RITUXIMAB
     Route: 042
     Dates: start: 20111005
  10. NAPROXEN. [Concomitant]
     Active Substance: NAPROXEN
     Route: 065
  11. ACTEMRA [Suspect]
     Active Substance: TOCILIZUMAB
     Indication: RHEUMATOID ARTHRITIS
     Route: 042
     Dates: start: 20130928
  12. RETINOL [Concomitant]
     Active Substance: RETINOL
  13. MABTHERA [Suspect]
     Active Substance: RITUXIMAB
     Route: 042
     Dates: start: 20140212
  14. NABUMETONE. [Concomitant]
     Active Substance: NABUMETONE
  15. MABTHERA [Suspect]
     Active Substance: RITUXIMAB
     Route: 042
     Dates: start: 20140226
  16. MABTHERA [Suspect]
     Active Substance: RITUXIMAB
     Route: 042
     Dates: start: 20140806
  17. PREDSIM [Concomitant]
     Active Substance: PREDNISOLONE
     Route: 065
  18. REUQUINOL [Concomitant]
     Active Substance: HYDROXYCHLOROQUINE SULFATE
     Route: 065

REACTIONS (8)
  - General physical health deterioration [Unknown]
  - Gastroenteritis [Unknown]
  - Uterine leiomyoma [Unknown]
  - Pruritus [Unknown]
  - Pain [Unknown]
  - Rash erythematous [Unknown]
  - Pyrexia [Unknown]
  - Bedridden [Unknown]
